FAERS Safety Report 8933995 (Version 2)
Quarter: 2012Q4

REPORT INFORMATION
  Report Type: Report from Study
  Country: US (occurrence: US)
  Receive Date: 20121129
  Receipt Date: 20121224
  Transmission Date: 20130627
  Serious: Yes (Death)
  Sender: FDA-Public Use
  Company Number: US-ROCHE-1158763

PATIENT
  Sex: Male
  Weight: 79.54 kg

DRUGS (2)
  1. CAPECITABINE [Suspect]
     Indication: NEOPLASM MALIGNANT
     Route: 048
     Dates: start: 20100504, end: 20100519
  2. CAPECITABINE [Suspect]
     Indication: NEOPLASM MALIGNANT

REACTIONS (1)
  - Neoplasm malignant [Fatal]
